FAERS Safety Report 12251674 (Version 19)
Quarter: 2017Q1

REPORT INFORMATION
  Report Type: Report from Study
  Country: CA (occurrence: CA)
  Receive Date: 20160410
  Receipt Date: 20170127
  Transmission Date: 20170428
  Serious: Yes (Hospitalization, Other)
  Sender: FDA-Public Use
  Company Number: CA-BRISTOL-MYERS SQUIBB COMPANY-BMS-2015-083419

PATIENT
  Age: 53 Year
  Sex: Female

DRUGS (6)
  1. VITAMIN B12 [Concomitant]
     Active Substance: CYANOCOBALAMIN
     Indication: PRODUCT USED FOR UNKNOWN INDICATION
     Route: 065
  2. PREDNISONE. [Concomitant]
     Active Substance: PREDNISONE
     Indication: PRODUCT USED FOR UNKNOWN INDICATION
     Route: 065
  3. CARBOCAL [Concomitant]
     Active Substance: CALCIUM CARBONATE
     Indication: PRODUCT USED FOR UNKNOWN INDICATION
     Route: 065
  4. TAMOXIFEN [Concomitant]
     Active Substance: TAMOXIFEN
     Indication: PRODUCT USED FOR UNKNOWN INDICATION
     Route: 065
  5. ABATACEPT [Suspect]
     Active Substance: ABATACEPT
     Indication: RHEUMATOID ARTHRITIS
     Dosage: 125 MG, QWK
     Route: 058
     Dates: start: 20150416
  6. SULFASALAZINE. [Concomitant]
     Active Substance: SULFASALAZINE
     Indication: PRODUCT USED FOR UNKNOWN INDICATION
     Route: 065

REACTIONS (40)
  - Hepatic enzyme increased [Not Recovered/Not Resolved]
  - Haemorrhoids [Unknown]
  - Abdominal distension [Recovered/Resolved]
  - Acne [Unknown]
  - Productive cough [Not Recovered/Not Resolved]
  - Heart rate increased [Unknown]
  - Drug ineffective [Unknown]
  - Pruritus [Recovered/Resolved]
  - Erythema [Unknown]
  - Blood pressure systolic increased [Unknown]
  - Malaise [Unknown]
  - Abdominal pain [Unknown]
  - Lung disorder [Unknown]
  - Diarrhoea [Unknown]
  - Hot flush [Unknown]
  - Nausea [Not Recovered/Not Resolved]
  - Sinusitis [Unknown]
  - Blood pressure diastolic increased [Unknown]
  - Face oedema [Not Recovered/Not Resolved]
  - Hyperhidrosis [Unknown]
  - Oropharyngeal pain [Not Recovered/Not Resolved]
  - Respiratory tract congestion [Not Recovered/Not Resolved]
  - Vomiting [Unknown]
  - Swelling face [Not Recovered/Not Resolved]
  - Burning sensation [Not Recovered/Not Resolved]
  - Contusion [Unknown]
  - Dyspnoea exertional [Unknown]
  - Cough [Not Recovered/Not Resolved]
  - Polypectomy [Unknown]
  - Dyspepsia [Recovered/Resolved]
  - Drug dose omission [Unknown]
  - Pyrexia [Unknown]
  - Back pain [Not Recovered/Not Resolved]
  - Arthralgia [Not Recovered/Not Resolved]
  - Fatigue [Unknown]
  - Blood pressure increased [Unknown]
  - Sensory disturbance [Unknown]
  - Influenza [Not Recovered/Not Resolved]
  - Abdominal pain upper [Unknown]
  - Gout [Unknown]

NARRATIVE: CASE EVENT DATE: 201511
